FAERS Safety Report 7002573-1 (Version None)
Quarter: 2010Q3

REPORT INFORMATION
  Report Type: 
  Country: None (occurrence: None)
  Receive Date: 20100920
  Receipt Date: 20100401
  Transmission Date: 20110219
  Serious: No
  Sender: FDA-Public Use
  Company Number: US-ASTRAZENECA-2010SE14414

PATIENT
  Sex: Female
  Weight: 68 kg

DRUGS (7)
  1. SEROQUEL [Suspect]
     Indication: INSOMNIA
     Route: 048
     Dates: start: 20080101, end: 20100101
  2. SEROQUEL [Suspect]
     Route: 048
     Dates: start: 20100101
  3. SEROQUEL [Suspect]
     Route: 048
     Dates: start: 20100101
  4. ZOLOFT [Concomitant]
  5. RESTORIL [Concomitant]
     Indication: INSOMNIA
  6. DEPLIN [Concomitant]
  7. ZYRTEC [Concomitant]
     Indication: SEASONAL ALLERGY

REACTIONS (8)
  - COUGH [None]
  - DRUG INEFFECTIVE [None]
  - DRY MOUTH [None]
  - OROPHARYNGEAL PAIN [None]
  - SLEEP DISORDER [None]
  - TONGUE DRY [None]
  - WEIGHT INCREASED [None]
  - WRONG TECHNIQUE IN DRUG USAGE PROCESS [None]
